FAERS Safety Report 9518842 (Version 2)
Quarter: 2013Q4

REPORT INFORMATION
  Report Type: Spontaneous
  Country: BR (occurrence: BR)
  Receive Date: 20130912
  Receipt Date: 20131101
  Transmission Date: 20140711
  Serious: Yes (Hospitalization, Other)
  Sender: FDA-Public Use
  Company Number: BR-NOVOPROD-387076

PATIENT
  Age: 33 Year
  Sex: Male
  Weight: 62 kg

DRUGS (4)
  1. NOVOLIN R [Suspect]
     Indication: TYPE 1 DIABETES MELLITUS
     Dosage: UNK (4 IU BEFORE LUNCH AND DINNER)
     Route: 058
     Dates: start: 1997
  2. NOVOLIN R [Suspect]
     Dosage: UNK (2 IU BEFORE LUNCH AND DINNER)
     Route: 058
     Dates: end: 2013
  3. HUMULIN [Concomitant]
     Indication: TYPE 1 DIABETES MELLITUS
     Dosage: 45 IU, QD
     Route: 058
     Dates: start: 1997
  4. LOSARTAN [Concomitant]
     Indication: HYPERTENSION
     Dosage: 1 TAB, QD
     Route: 048
     Dates: start: 201307

REACTIONS (2)
  - Multiple sclerosis [Not Recovered/Not Resolved]
  - Hypoglycaemia [Unknown]
